FAERS Safety Report 8361039-7 (Version None)
Quarter: 2012Q2

REPORT INFORMATION
  Report Type: 
  Country: None (occurrence: None)
  Receive Date: 20120515
  Receipt Date: 20120507
  Transmission Date: 20120825
  Serious: Yes (Death)
  Sender: FDA-Public Use
  Company Number: BR-COVIDIEN/TYCO HEALTHCARE/MALLINCKRODT-T201201714

PATIENT
  Sex: Male

DRUGS (1)
  1. EXALGO [Suspect]
     Indication: PAIN
     Dosage: ONLY RECEIVED 5 TABLETS
     Route: 048
     Dates: start: 20120401

REACTIONS (1)
  - DIABETES MELLITUS [None]
